FAERS Safety Report 9285692 (Version 5)
Quarter: 2013Q2

REPORT INFORMATION
  Report Type: Spontaneous
  Country: US (occurrence: US)
  Receive Date: 20130513
  Receipt Date: 20130625
  Transmission Date: 20140414
  Serious: No
  Sender: FDA-Public Use
  Company Number: US-VERTEX PHARMACEUTICALS INC-2013-005888

PATIENT
  Age: 67 Year
  Sex: Male
  Weight: 82 kg

DRUGS (3)
  1. INCIVEK [Suspect]
     Indication: HEPATITIS C
     Dosage: 750 MG, TID
     Route: 048
     Dates: start: 20130418, end: 201304
  2. PEGINTRON [Suspect]
     Indication: HEPATITIS C
     Dosage: 180 ?G, WEEKLY
     Route: 058
     Dates: start: 20130418
  3. REBETOL [Suspect]
     Indication: HEPATITIS C
     Dosage: 200 MG, BID
     Route: 048
     Dates: start: 20130418

REACTIONS (5)
  - Wrong technique in drug usage process [Not Recovered/Not Resolved]
  - Foreign body [Not Recovered/Not Resolved]
  - Dysphagia [Recovered/Resolved]
  - Retching [Unknown]
  - Vomiting [Not Recovered/Not Resolved]
